FAERS Safety Report 23225745 (Version 1)
Quarter: 2023Q4

REPORT INFORMATION
  Report Type: Spontaneous
  Country: US (occurrence: US)
  Receive Date: 20231124
  Receipt Date: 20231124
  Transmission Date: 20240110
  Serious: No
  Sender: FDA-Public Use
  Company Number: US-SANOFI-01844708

PATIENT
  Age: 69 Year
  Sex: Female

DRUGS (3)
  1. SOLIQUA 100/33 [Suspect]
     Active Substance: INSULIN GLARGINE\LIXISENATIDE
     Indication: Type 2 diabetes mellitus
     Dosage: 30 IU, QD
  2. NOVOLOG [Concomitant]
     Active Substance: INSULIN ASPART
  3. LEVEMIR [Concomitant]
     Active Substance: INSULIN DETEMIR

REACTIONS (2)
  - Eye disorder [Unknown]
  - Muscle disorder [Unknown]
